FAERS Safety Report 23907300 (Version 2)
Quarter: 2024Q2

REPORT INFORMATION
  Report Type: Other
  Country: US (occurrence: None)
  Receive Date: 20240528
  Receipt Date: 20240529
  Transmission Date: 20240715
  Serious: Yes (Other)
  Sender: FDA-Public Use
  Company Number: US-ROCHE-3333681

PATIENT
  Age: 55 Year
  Sex: Male
  Weight: 85.806 kg

DRUGS (2)
  1. OCREVUS [Suspect]
     Active Substance: OCRELIZUMAB
     Indication: Primary progressive multiple sclerosis
     Dosage: PRIOR DOSE: RECEIVED 2 HALF DOSE INFUSIONS (EVERY 2 WEEKS), DATE OF TREATMENT : 22/MAR/2023, 04/OCT/
     Route: 042
     Dates: start: 20230307
  2. GABAPENTIN [Concomitant]
     Active Substance: GABAPENTIN
     Indication: Neuralgia
     Dosage: 600 MG THRICE A DAY, STARTED 13 YEARS AGO ORAL

REACTIONS (12)
  - Paralysis [Not Recovered/Not Resolved]
  - Seizure [Not Recovered/Not Resolved]
  - Infusion related reaction [Not Recovered/Not Resolved]
  - Blood pressure increased [Not Recovered/Not Resolved]
  - Dysphagia [Not Recovered/Not Resolved]
  - Failed back surgery syndrome [Not Recovered/Not Resolved]
  - Incision site pain [Not Recovered/Not Resolved]
  - Cerebral small vessel ischaemic disease [Not Recovered/Not Resolved]
  - Gait disturbance [Not Recovered/Not Resolved]
  - Muscle spasticity [Not Recovered/Not Resolved]
  - Clonus [Not Recovered/Not Resolved]
  - Cellulitis [Unknown]

NARRATIVE: CASE EVENT DATE: 20230308
